FAERS Safety Report 5265845-7 (Version None)
Quarter: 2007Q1

REPORT INFORMATION
  Report Type: 
  Country: None (occurrence: None)
  Receive Date: 20070312
  Receipt Date: 20070312
  Transmission Date: 20070707
  Serious: Yes (Hospitalization)
  Sender: FDA-Public Use
  Company Number: None

PATIENT
  Age: 82 Year
  Sex: Male
  Weight: 69.9 kg

DRUGS (7)
  1. ASPIRIN [Suspect]
     Dosage: PRIVATE, BY MOUTH
     Route: 048
     Dates: start: 20061118, end: 20061218
  2. ATENOLOL [Concomitant]
  3. FUROSEMIDE [Concomitant]
  4. ISOSORBIDE DINITRATE [Concomitant]
  5. NIFEDIPINE (EQV-CC) [Concomitant]
  6. RANITIDINE HCL [Concomitant]
  7. TRAMADOL HCL [Concomitant]

REACTIONS (2)
  - GASTROINTESTINAL DISORDER [None]
  - GASTROINTESTINAL HAEMORRHAGE [None]
